FAERS Safety Report 19936011 (Version 1)
Quarter: 2021Q4

REPORT INFORMATION
  Report Type: Spontaneous
  Country: US (occurrence: US)
  Receive Date: 20211009
  Receipt Date: 20211009
  Transmission Date: 20220303
  Serious: Yes (Other)
  Sender: FDA-Public Use
  Company Number: None

PATIENT
  Age: 71 Year
  Sex: Male

DRUGS (2)
  1. DOCETAXEL [Suspect]
     Active Substance: DOCETAXEL
     Indication: Lung squamous cell carcinoma stage III
     Route: 065
  2. CISPLATIN [Suspect]
     Active Substance: CISPLATIN
     Indication: Lung squamous cell carcinoma stage III
     Route: 065

REACTIONS (5)
  - Vasogenic cerebral oedema [Recovered/Resolved]
  - Leukoencephalopathy [Recovered/Resolved]
  - Orthostatic hypotension [Recovered/Resolved]
  - Pneumonia aspiration [Recovered/Resolved]
  - Generalised tonic-clonic seizure [Recovered/Resolved]
